FAERS Safety Report 23470545 (Version 1)
Quarter: 2024Q1

REPORT INFORMATION
  Report Type: Report from Study
  Country: CA (occurrence: CA)
  Receive Date: 20240202
  Receipt Date: 20240202
  Transmission Date: 20240410
  Serious: Yes (Death, Hospitalization, Other)
  Sender: FDA-Public Use
  Company Number: CA-BEH-2023162024

PATIENT
  Age: 73 Year
  Sex: Male
  Weight: 64.399 kg

DRUGS (7)
  1. HIZENTRA [Suspect]
     Active Substance: HUMAN IMMUNOGLOBULIN G
     Indication: Primary immunodeficiency syndrome
     Dosage: 15 GRAM, QW
     Route: 065
     Dates: start: 20150220
  2. COLCHICINE [Concomitant]
     Active Substance: COLCHICINE
  3. RITUXIMAB [Concomitant]
     Active Substance: RITUXIMAB
  4. COUMADIN [Concomitant]
     Active Substance: WARFARIN SODIUM
  5. PREDNISONE [Concomitant]
     Active Substance: PREDNISONE
  6. SEPTRA [Concomitant]
     Active Substance: SULFAMETHOXAZOLE\TRIMETHOPRIM
  7. FLUCONAZOLE [Concomitant]
     Active Substance: FLUCONAZOLE

REACTIONS (10)
  - Pancreatic haemorrhage [Not Recovered/Not Resolved]
  - Neck mass [Not Recovered/Not Resolved]
  - Upper gastrointestinal haemorrhage [Not Recovered/Not Resolved]
  - Anaemia [Unknown]
  - Thrombosis [Unknown]
  - Gait inability [Unknown]
  - Motor dysfunction [Unknown]
  - Gastrointestinal haemorrhage [Unknown]
  - Haemoglobin decreased [Unknown]
  - Death [Fatal]

NARRATIVE: CASE EVENT DATE: 20220901
